FAERS Safety Report 13150026 (Version 3)
Quarter: 2017Q3

REPORT INFORMATION
  Report Type: Spontaneous
  Country: US (occurrence: US)
  Receive Date: 20170125
  Receipt Date: 20170706
  Transmission Date: 20171127
  Serious: Yes (Death, Other)
  Sender: FDA-Public Use
  Company Number: US-PFIZER INC-2017026295

PATIENT
  Sex: Male
  Weight: 99 kg

DRUGS (3)
  1. VFEND [Suspect]
     Active Substance: VORICONAZOLE
     Indication: PNEUMONIA FUNGAL
     Dosage: 150 MG, 2X/DAY
     Route: 048
  2. ACYCLOVIR /00587301/ [Concomitant]
     Active Substance: ACYCLOVIR
     Indication: ACUTE LEUKAEMIA
     Dosage: UNK
  3. CIPROFLOXACIN. [Concomitant]
     Active Substance: CIPROFLOXACIN
     Indication: LEUKAEMIA
     Dosage: UNK

REACTIONS (4)
  - Death [Fatal]
  - Platelet count decreased [Unknown]
  - Malaise [Unknown]
  - Pneumonia bacterial [Unknown]
